FAERS Safety Report 16019988 (Version 2)
Quarter: 2019Q1

REPORT INFORMATION
  Report Type: Spontaneous
  Country: DE (occurrence: DE)
  Receive Date: 20190228
  Receipt Date: 20190306
  Transmission Date: 20190418
  Serious: Yes (Hospitalization)
  Sender: FDA-Public Use
  Company Number: DE-MYLANLABS-09P-062-0791437-00

PATIENT
  Age: 73 Year
  Sex: Female

DRUGS (11)
  1. XYLOCITIN [Interacting]
     Active Substance: LIDOCAINE HYDROCHLORIDE
     Indication: LOCAL ANAESTHESIA
     Dosage: 1 DOSAGE FORM, TOTAL
     Route: 058
     Dates: start: 20080930, end: 20080930
  2. NOVONORM [Concomitant]
     Active Substance: REPAGLINIDE
     Indication: TYPE 2 DIABETES MELLITUS
     Dosage: DAILY DOSE: 2 MILLIGRAM(S)
     Route: 048
     Dates: start: 200808
  3. BISOPROLOL [Suspect]
     Active Substance: BISOPROLOL
     Indication: HYPERTENSION
     Dosage: DAILY DOSE: 10 MILLIGRAM(S)
     Route: 048
     Dates: start: 2005, end: 20080930
  4. ALDACTONE [Concomitant]
     Active Substance: SPIRONOLACTONE
     Indication: OEDEMA
     Dosage: DAILY DOSE: 25 MILLIGRAM(S)
     Route: 048
     Dates: start: 200801
  5. FALITHROM [Concomitant]
     Active Substance: PHENPROCOUMON
     Indication: ATRIAL FIBRILLATION
     Dosage: DAILY DOSE: 1.5 MILLIGRAM(S)
     Route: 048
     Dates: start: 200801
  6. FALITHROM [Concomitant]
     Active Substance: PHENPROCOUMON
     Dosage: 2 MILLIGRAM, QD
     Route: 065
     Dates: start: 200801
  7. DIOVAN [Concomitant]
     Active Substance: VALSARTAN
     Indication: HYPERTENSION
     Dosage: DAILY DOSE: 160 MILLIGRAM(S)
     Route: 048
     Dates: start: 200801
  8. SPIRONOLACTONE. [Concomitant]
     Active Substance: SPIRONOLACTONE
     Indication: OEDEMA
     Dosage: 25 MILLIGRAM, QD
     Route: 065
     Dates: start: 200801
  9. TRIAM                              /00031902/ [Interacting]
     Active Substance: TRIAMCINOLONE ACETONIDE
     Indication: ARTHRITIS
     Dosage: DAILY DOSE: 40 MILLIGRAM(S), FREQUENCY: ONCE
     Route: 014
     Dates: start: 20080930, end: 20080930
  10. MOXONIDINE [Interacting]
     Active Substance: MOXONIDINE
     Indication: HYPERTENSION
     Dosage: DAILY DOSE: .3 MILLIGRAM(S)
     Route: 048
     Dates: start: 200804, end: 20080930
  11. DIGITOXIN [Interacting]
     Active Substance: DIGITOXIN
     Indication: ATRIAL FIBRILLATION
     Dosage: DAILY DOSE: .07 MILLIGRAM(S)
     Route: 048
     Dates: start: 200801, end: 20080930

REACTIONS (2)
  - Drug interaction [Unknown]
  - Sinus bradycardia [Recovered/Resolved]

NARRATIVE: CASE EVENT DATE: 20080930
